FAERS Safety Report 12776691 (Version 1)
Quarter: 2016Q3

REPORT INFORMATION
  Report Type: Report from Study
  Country: DE (occurrence: DE)
  Receive Date: 20160923
  Receipt Date: 20160923
  Transmission Date: 20161109
  Serious: Yes (Hospitalization)
  Sender: FDA-Public Use
  Company Number: US-ASTRAZENECA-2016SF00989

PATIENT
  Age: 6 Month
  Sex: Male

DRUGS (3)
  1. SYNAGIS [Suspect]
     Active Substance: PALIVIZUMAB
     Indication: ANTIVIRAL PROPHYLAXIS
     Dosage: 103 MCI MILLICURIE
     Route: 030
     Dates: start: 20100223, end: 20100223
  2. SYNAGIS [Suspect]
     Active Substance: PALIVIZUMAB
     Indication: ANTIVIRAL PROPHYLAXIS
     Dosage: 40 MG
     Route: 030
     Dates: start: 20091106, end: 20091106
  3. SYNAGIS [Suspect]
     Active Substance: PALIVIZUMAB
     Indication: ANTIVIRAL PROPHYLAXIS
     Dosage: 97 MG
     Route: 030
     Dates: start: 20100126, end: 20100126

REACTIONS (1)
  - Bronchitis [Unknown]

NARRATIVE: CASE EVENT DATE: 20100307
